FAERS Safety Report 20043498 (Version 2)
Quarter: 2022Q1

REPORT INFORMATION
  Report Type: Report from Study
  Country: US (occurrence: US)
  Receive Date: 20211108
  Receipt Date: 20220118
  Transmission Date: 20220423
  Serious: No
  Sender: FDA-Public Use
  Company Number: US-NOVARTISTESTPH-NVSC2021US253858

PATIENT
  Age: 60 Year
  Sex: Female

DRUGS (1)
  1. MYFORTIC [Suspect]
     Active Substance: MYCOPHENOLATE SODIUM
     Indication: Transplant
     Dosage: 360 MG/KG, BID
     Route: 048

REACTIONS (3)
  - Malaise [Unknown]
  - Sinus congestion [Unknown]
  - Headache [Unknown]

NARRATIVE: CASE EVENT DATE: 20210114
